FAERS Safety Report 6720160-7 (Version None)
Quarter: 2010Q2

REPORT INFORMATION
  Report Type: 
  Country: None (occurrence: None)
  Receive Date: 20100511
  Receipt Date: 20100504
  Transmission Date: 20101027
  Serious: Yes (Death)
  Sender: FDA-Public Use
  Company Number: EG-SANOFI-AVENTIS-2010SA025846

PATIENT
  Age: 44 Year
  Sex: Male

DRUGS (2)
  1. INSULIN GLARGINE [Suspect]
     Indication: DIABETES MELLITUS
     Dosage: STARTED ON 10 UNITS AND INCREASED THE DOSE TO
     Route: 058
     Dates: start: 20090127, end: 20090401
  2. INSULIN GLARGINE [Suspect]
     Route: 058
     Dates: start: 20090401, end: 20090901

REACTIONS (2)
  - DEATH [None]
  - HYPOGLYCAEMIA [None]
